FAERS Safety Report 12852687 (Version 1)
Quarter: 2016Q4

REPORT INFORMATION
  Report Type: Spontaneous
  Country: GR (occurrence: GR)
  Receive Date: 20161017
  Receipt Date: 20161017
  Transmission Date: 20170207
  Serious: Yes (Hospitalization, Other)
  Sender: FDA-Public Use
  Company Number: GR-ALEMBIC PHARMACUETICALS LIMITED-2016SCAL000818

PATIENT

DRUGS (1)
  1. VALSARTAN. [Suspect]
     Active Substance: VALSARTAN
     Indication: PRODUCT USED FOR UNKNOWN INDICATION
     Dosage: UNK
     Route: 064

REACTIONS (5)
  - Neonatal disorder [Unknown]
  - Acute kidney injury [Unknown]
  - Foetal growth restriction [Unknown]
  - Oligohydramnios [Unknown]
  - Foetal exposure during pregnancy [Unknown]
